FAERS Safety Report 4444510-X (Version None)
Quarter: 2004Q3

REPORT INFORMATION
  Report Type: 
  Country: None (occurrence: None)
  Receive Date: 20040902
  Receipt Date: 20040820
  Transmission Date: 20050211
  Serious: Yes (Life-Threatening, Hospitalization)
  Sender: FDA-Public Use
  Company Number: 200407697

PATIENT
  Age: 60 Year
  Sex: Female

DRUGS (3)
  1. BOTOX [Suspect]
     Indication: DYSTONIA
  2. ELAVIL [Concomitant]
  3. VALIUM [Concomitant]

REACTIONS (4)
  - CARDIAC FAILURE [None]
  - CARDIOMYOPATHY [None]
  - DYSTONIA [None]
  - THERAPEUTIC RESPONSE DECREASED [None]
